FAERS Safety Report 13129123 (Version 2)
Quarter: 2017Q1

REPORT INFORMATION
  Report Type: Spontaneous
  Country: US (occurrence: US)
  Receive Date: 20170119
  Receipt Date: 20170202
  Transmission Date: 20170428
  Serious: Yes (Hospitalization)
  Sender: FDA-Public Use
  Company Number: US-TEVA-727984ACC

PATIENT
  Age: 69 Year
  Sex: Female

DRUGS (14)
  1. CALCIUM [Concomitant]
     Active Substance: CALCIUM
  2. GABAPENTIN. [Concomitant]
     Active Substance: GABAPENTIN
  3. VESICARE [Concomitant]
     Active Substance: SOLIFENACIN SUCCINATE
  4. OMEPRAZOLE. [Concomitant]
     Active Substance: OMEPRAZOLE
  5. MINERALS [Concomitant]
     Active Substance: MINERALS
  6. COPAXONE [Suspect]
     Active Substance: GLATIRAMER ACETATE
     Indication: MULTIPLE SCLEROSIS
     Route: 058
     Dates: start: 20121012
  7. AMPYRA [Concomitant]
     Active Substance: DALFAMPRIDINE
  8. BACLOFEN. [Concomitant]
     Active Substance: BACLOFEN
  9. TRAMADOL. [Concomitant]
     Active Substance: TRAMADOL
  10. GRAPE SEED [Concomitant]
  11. DULOXETINE. [Concomitant]
     Active Substance: DULOXETINE
  12. TIZANIDINE. [Concomitant]
     Active Substance: TIZANIDINE
  13. TRAMADOL. [Concomitant]
     Active Substance: TRAMADOL
  14. VITAMIN D [Concomitant]
     Active Substance: CHOLECALCIFEROL

REACTIONS (5)
  - Nausea [Unknown]
  - Head injury [Unknown]
  - Fall [Unknown]
  - Drug dose omission [Unknown]
  - Dizziness [Unknown]

NARRATIVE: CASE EVENT DATE: 20161102
